FAERS Safety Report 6338967-7 (Version None)
Quarter: 2009Q3

REPORT INFORMATION
  Report Type: 
  Country: None (occurrence: None)
  Receive Date: 20090821
  Receipt Date: 20090710
  Transmission Date: 20100115
  Serious: No
  Sender: FDA-Public Use
  Company Number: 8037837

PATIENT
  Age: 51 Year
  Sex: Male
  Weight: 71.8 kg

DRUGS (10)
  1. CIMZIA [Suspect]
     Indication: CROHN'S DISEASE
     Dosage: 400 MG 1/2W SC
     Route: 058
     Dates: start: 20080801, end: 20090201
  2. CIMZIA [Suspect]
     Indication: CROHN'S DISEASE
     Dosage: 400 MG SC
     Route: 058
     Dates: start: 20090301
  3. PENTASA [Concomitant]
  4. PREDNISONE TAB [Concomitant]
  5. FLAGYL [Concomitant]
  6. QUESTRAN [Concomitant]
  7. LISINOPRIL [Concomitant]
  8. INSULIN [Concomitant]
  9. PERCOCET [Concomitant]
  10. FENTANYL [Concomitant]

REACTIONS (7)
  - ABSCESS [None]
  - BLOOD GLUCOSE INCREASED [None]
  - CONTUSION [None]
  - NASOPHARYNGITIS [None]
  - NEUROPATHY PERIPHERAL [None]
  - SINUS CONGESTION [None]
  - WHEEZING [None]
